FAERS Safety Report 6175991-1 (Version None)
Quarter: 2009Q2

REPORT INFORMATION
  Report Type: 
  Country: None (occurrence: None)
  Receive Date: 20090501
  Receipt Date: 20071220
  Transmission Date: 20091009
  Serious: Yes (Other)
  Sender: FDA-Public Use
  Company Number: FR-ALEXION-A200700126

PATIENT

DRUGS (4)
  1. SOLIRIS [Suspect]
     Indication: PAROXYSMAL NOCTURNAL HAEMOGLOBINURIA
     Dosage: 600 MG, SINGLE
     Route: 042
     Dates: start: 20071031, end: 20071031
  2. SOLIRIS [Suspect]
     Route: 042
     Dates: start: 20070101, end: 20070101
  3. SOLIRIS [Suspect]
     Route: 042
     Dates: start: 20070101, end: 20070101
  4. MENINGOCOCCAL VACCINE [Concomitant]
     Indication: IMMUNISATION
     Dosage: SINGLE
     Dates: start: 20071019, end: 20071019

REACTIONS (4)
  - HEADACHE [None]
  - NAUSEA [None]
  - PAIN IN EXTREMITY [None]
  - VOMITING [None]
